FAERS Safety Report 6531847-3 (Version None)
Quarter: 2010Q2

REPORT INFORMATION
  Report Type: 
  Country: None (occurrence: None)
  Receive Date: 20100108
  Receipt Date: 20091230
  Transmission Date: 20101027
  Serious: Yes (Other)
  Sender: FDA-Public Use
  Company Number: US-JNJFOC-20091003292

PATIENT
  Sex: Male
  Weight: 17.46 kg

DRUGS (9)
  1. CHILDREN'S TYLENOL SUSPENSION [Suspect]
     Route: 048
  2. CHILDREN'S TYLENOL SUSPENSION [Suspect]
     Indication: PROCEDURAL PAIN
     Dosage: 240 MG EVERY 4-6 HOURS
     Route: 048
  3. CHILDREN'S IBUPROFEN [Concomitant]
     Indication: PROCEDURAL PAIN
     Dosage: 4-5 WEEKS
  4. XOPENEX [Concomitant]
     Indication: PYREXIA
  5. XOPENEX [Concomitant]
     Indication: NASOPHARYNGITIS
  6. OMNICEF [Concomitant]
     Indication: PYREXIA
  7. OMNICEF [Concomitant]
     Indication: NASOPHARYNGITIS
  8. CLARITIN [Concomitant]
     Indication: NASOPHARYNGITIS
  9. CLARITIN [Concomitant]
     Indication: PYREXIA

REACTIONS (4)
  - INSOMNIA [None]
  - MIGRAINE [None]
  - TRANSMISSION OF AN INFECTIOUS AGENT VIA A MEDICINAL PRODUCT [None]
  - VOMITING [None]
